FAERS Safety Report 4350043-1 (Version None)
Quarter: 2004Q2

REPORT INFORMATION
  Report Type: 
  Country: None (occurrence: None)
  Receive Date: 20040429
  Receipt Date: 20040402
  Transmission Date: 20050107
  Serious: Yes (Hospitalization)
  Sender: FDA-Public Use
  Company Number: PHFR2004GB01654

PATIENT
  Age: 74 Year
  Sex: Male

DRUGS (4)
  1. BACLOFEN [Suspect]
     Indication: MULTIPLE SCLEROSIS
     Dosage: 20 MG, TID
     Route: 048
  2. OXYBUTYNIN [Concomitant]
     Indication: HYPERTONIC BLADDER
     Dosage: 2.5 MG, BID
     Route: 048
  3. RABEPRAZOLE SODIUM [Concomitant]
     Indication: GASTROOESOPHAGEAL REFLUX DISEASE
     Dosage: 10 MG/DAY
     Route: 048
  4. FERROUS GLUCONATE [Concomitant]
     Indication: ANAEMIA
     Dosage: UNK, PRN
     Route: 048

REACTIONS (4)
  - ANAEMIA [None]
  - DUODENAL ULCER HAEMORRHAGE [None]
  - HAEMORRHAGE [None]
  - NEPHROLITHIASIS [None]
